FAERS Safety Report 16245010 (Version 1)
Quarter: 2019Q2

REPORT INFORMATION
  Report Type: Spontaneous
  Country: US (occurrence: US)
  Receive Date: 20190426
  Receipt Date: 20190426
  Transmission Date: 20190711
  Serious: Yes (Hospitalization, Other)
  Sender: FDA-Public Use
  Company Number: US-TEVA-2019-US-1042462

PATIENT
  Age: 21 Year
  Sex: Male
  Weight: 93.9 kg

DRUGS (13)
  1. PREDNISONE. [Concomitant]
     Active Substance: PREDNISONE
     Indication: ACUTE GRAFT VERSUS HOST DISEASE IN SKIN
     Route: 048
  2. TACROLIMUS. [Concomitant]
     Active Substance: TACROLIMUS
     Dosage: DOSE 2.5MG
     Route: 065
     Dates: start: 20181114
  3. ZOSYN [Concomitant]
     Active Substance: PIPERACILLIN SODIUM\TAZOBACTAM SODIUM
     Indication: URINARY TRACT INFECTION
     Dosage: 3.325 G Q6HRS
     Route: 042
  4. CICLOSPORIN [Suspect]
     Active Substance: CYCLOSPORINE
     Indication: PROPHYLAXIS
     Route: 065
     Dates: start: 20190128, end: 20190131
  5. VEETIDS [Concomitant]
     Active Substance: PENICILLIN V POTASSIUM
     Dosage: DOSE 500MG
     Route: 065
     Dates: start: 20181213
  6. MAGNESIUM SULFATE. [Concomitant]
     Active Substance: MAGNESIUM SULFATE
     Route: 065
     Dates: start: 20181110
  7. PREDNISONE ACETATE [Concomitant]
     Active Substance: PREDNISONE ACETATE
     Route: 065
     Dates: start: 20181213
  8. AMLODIPINE [Concomitant]
     Active Substance: AMLODIPINE BESYLATE
     Route: 065
     Dates: start: 20181222
  9. ERYTHROMYCIN. [Concomitant]
     Active Substance: ERYTHROMYCIN
     Dosage: CREAM 0.5 %
     Route: 065
     Dates: start: 20181205
  10. DITROPAN XL [Concomitant]
     Active Substance: OXYBUTYNIN CHLORIDE
     Dosage: DOSE 10 MG
     Route: 048
  11. BACTRIM DS [Concomitant]
     Active Substance: SULFAMETHOXAZOLE\TRIMETHOPRIM
     Dosage: DOSE 800-160 MG
     Route: 065
     Dates: start: 20180627
  12. FENTANYL. [Concomitant]
     Active Substance: FENTANYL
     Indication: CYSTITIS
     Dosage: 25 MCG/HR PATCH Q72 HOURS
     Route: 065
     Dates: start: 20190130
  13. VALGANCICLOVIR. [Concomitant]
     Active Substance: VALGANCICLOVIR
     Dosage: 450 MILLICURIES DAILY; DOSE 450 MG
     Route: 048
     Dates: start: 20181213

REACTIONS (5)
  - Tremor [Unknown]
  - Ataxia [Unknown]
  - Posterior reversible encephalopathy syndrome [Not Recovered/Not Resolved]
  - Mental status changes [Unknown]
  - Neurotoxicity [Not Recovered/Not Resolved]
